FAERS Safety Report 4856875-5 (Version None)
Quarter: 2005Q4

REPORT INFORMATION
  Report Type: 
  Country: None (occurrence: None)
  Receive Date: 20051219
  Receipt Date: 20050202
  Transmission Date: 20060501
  Serious: No
  Sender: FDA-Public Use
  Company Number: US-GLAXOSMITHKLINE-A0543411A

PATIENT
  Age: 72 Year
  Sex: Female

DRUGS (7)
  1. NICODERM CQ [Suspect]
     Dates: start: 20050129
  2. NICODERM CQ [Suspect]
  3. ALTACE [Concomitant]
  4. CLONAZEPAM [Concomitant]
  5. PAXIL [Concomitant]
  6. DEPAKOTE [Concomitant]
  7. LANTUS [Concomitant]

REACTIONS (4)
  - HEADACHE [None]
  - INSOMNIA [None]
  - NAUSEA [None]
  - NERVOUSNESS [None]
